FAERS Safety Report 7294166 (Version 2)
Quarter: 2024Q2

REPORT INFORMATION
  Report Type: Spontaneous
  Country: DE (occurrence: DE)
  Receive Date: 20091204
  Receipt Date: 20240515
  Transmission Date: 20240716
  Serious: Yes (Hospitalization, Other)
  Sender: FDA-Public Use
  Company Number: DE-PFIZER INC-2009304473

PATIENT
  Age: 23 Year
  Sex: Female
  Weight: 55 kg

DRUGS (8)
  1. CLINDAMYCIN HYDROCHLORIDE [Suspect]
     Active Substance: CLINDAMYCIN HYDROCHLORIDE
     Dosage: 5400 MG, 18 CAPSULES
  2. DOXYCYCLINE HYCLATE [Suspect]
     Active Substance: DOXYCYCLINE HYCLATE
     Dosage: 10 TABLETS
  3. ACETAMINOPHEN [Suspect]
     Active Substance: ACETAMINOPHEN
     Dosage: 3 G
  4. CETIRIZINE HYDROCHLORIDE [Suspect]
     Active Substance: CETIRIZINE HYDROCHLORIDE
     Dosage: 14 TABLETS
  5. NOVALGIN (METAMIZOLE SODIUM) [Suspect]
     Active Substance: METAMIZOLE SODIUM
     Dosage: 3000 MG, 6X500 MG TABLETS
  6. MINOCYCLINE [Suspect]
     Active Substance: MINOCYCLINE HYDROCHLORIDE
     Dosage: 1700 MG
  7. ASCORBIC ACID\CETYLPYRIDINIUM CHLORIDE\DEQUALINIUM CHLORIDE\HESPERIDIN [Suspect]
     Active Substance: ASCORBIC ACID\CETYLPYRIDINIUM CHLORIDE\DEQUALINIUM CHLORIDE\HESPERIDIN METHYLCHALCONE
     Dosage: UNK
  8. DOXYCYCLINE HYDROCHLORIDE [Suspect]
     Active Substance: DOXYCYCLINE HYDROCHLORIDE
     Dosage: 13 TABLETS

REACTIONS (3)
  - Overdose [Unknown]
  - Suicide attempt [Unknown]
  - Conversion disorder [Unknown]
